FAERS Safety Report 5311675-7 (Version None)
Quarter: 2007Q2

REPORT INFORMATION
  Report Type: 
  Country: None (occurrence: None)
  Receive Date: 20070430
  Receipt Date: 20060626
  Transmission Date: 20071010
  Serious: No
  Sender: FDA-Public Use
  Company Number: 2006UW13457

PATIENT
  Sex: Female

DRUGS (4)
  1. ZOMIG [Suspect]
     Route: 045
  2. ELMIRON [Concomitant]
  3. CLARINEX [Concomitant]
  4. TRISPIRENTIC [Concomitant]

REACTIONS (1)
  - COELIAC DISEASE [None]
